FAERS Safety Report 7620995-2 (Version None)
Quarter: 2011Q3

REPORT INFORMATION
  Report Type: 
  Country: None (occurrence: None)
  Receive Date: 20110719
  Receipt Date: 20101029
  Transmission Date: 20111222
  Serious: No
  Sender: FDA-Public Use
  Company Number: US-KINGPHARMUSA00001-K201001333

PATIENT
  Age: 31 Year
  Sex: Female
  Weight: 78.005 kg

DRUGS (2)
  1. LEVOXYL [Suspect]
     Indication: HYPOTHYROIDISM
     Dosage: 50 MCG, QD
     Route: 048
     Dates: start: 20101020, end: 20101027
  2. VITAMIN TAB [Concomitant]

REACTIONS (1)
  - CONSTIPATION [None]
